FAERS Safety Report 4575446-1 (Version None)
Quarter: 2005Q1

REPORT INFORMATION
  Report Type: 
  Country: None (occurrence: None)
  Receive Date: 20050131
  Receipt Date: 20050131
  Transmission Date: 20050727
  Serious: Yes (Life-Threatening, Hospitalization)
  Sender: FDA-Public Use
  Company Number: None

PATIENT
  Sex: Male
  Weight: 81.6475 kg

DRUGS (1)
  1. VISICOL [Suspect]
     Indication: COLONOSCOPY
     Dates: start: 20030416, end: 20030417

REACTIONS (2)
  - DRUG INTERACTION [None]
  - RENAL FAILURE [None]
